FAERS Safety Report 7804934-7 (Version None)
Quarter: 2011Q4

REPORT INFORMATION
  Report Type: 
  Country: None (occurrence: None)
  Receive Date: 20111010
  Receipt Date: 20110928
  Transmission Date: 20120403
  Serious: Yes (Death)
  Sender: FDA-Public Use
  Company Number: US-MYLANLABS-2009S1013136

PATIENT
  Age: 52 Year
  Sex: Male
  Weight: 83.01 kg

DRUGS (6)
  1. FENTANYL-100 [Suspect]
     Indication: NECK PAIN
     Dosage: CHANGED PATCHES Q3D
  2. DURAGESIC-100 [Suspect]
     Indication: NECK PAIN
  3. HYDROCODONE BITARTRATE AND ACETAMINOPHEN [Concomitant]
     Indication: BREAKTHROUGH PAIN
     Dosage: 10MG/650MG TABLETS
  4. DURAGESIC-100 [Suspect]
     Indication: BACK PAIN
  5. FENTANYL-100 [Suspect]
     Indication: BACK PAIN
     Dosage: CHANGED PATCHES Q3D
  6. GABAPENTIN [Concomitant]
     Route: 048

REACTIONS (7)
  - CARDIAC ARREST [None]
  - TOXICITY TO VARIOUS AGENTS [None]
  - OVERDOSE [None]
  - INTENTIONAL DRUG MISUSE [None]
  - MYOCARDIAL INFARCTION [None]
  - MYOCARDIAL ISCHAEMIA [None]
  - ATRIOVENTRICULAR BLOCK COMPLETE [None]
